FAERS Safety Report 5221270-6 (Version None)
Quarter: 2007Q1

REPORT INFORMATION
  Report Type: 
  Country: None (occurrence: None)
  Receive Date: 20070126
  Receipt Date: 20070118
  Transmission Date: 20070707
  Serious: Yes (Life-Threatening, Hospitalization, Other)
  Sender: FDA-Public Use
  Company Number: JP-PFIZER INC-2006110955

PATIENT
  Sex: Male
  Weight: 64.9 kg

DRUGS (10)
  1. DETRUSITOL SR [Suspect]
     Indication: URGE INCONTINENCE
     Dosage: DAILY DOSE:4MG-FREQ:FREQUENCY: QD
     Route: 048
     Dates: start: 20060913, end: 20060913
  2. DETRUSITOL SR [Suspect]
     Indication: HYPERTONIC BLADDER
  3. PANALDINE [Concomitant]
     Route: 048
     Dates: start: 20060529, end: 20060913
  4. TAKEPRON [Concomitant]
     Route: 048
     Dates: start: 20060529, end: 20060913
  5. ARICEPT [Concomitant]
     Route: 048
     Dates: start: 20060529, end: 20060913
  6. HARNAL [Concomitant]
     Route: 048
     Dates: start: 20060614, end: 20060913
  7. CARDENALIN [Concomitant]
     Route: 048
     Dates: start: 20060529, end: 20060913
  8. FERROMIA [Concomitant]
     Route: 048
     Dates: start: 20060830, end: 20060913
  9. ALL OTHER THERAPEUTIC PRODUCTS [Concomitant]
     Route: 048
  10. THIAMAZOLE [Concomitant]
     Dates: start: 20060529, end: 20060913

REACTIONS (4)
  - CHEST PAIN [None]
  - CHOLECYSTITIS [None]
  - CHOLELITHIASIS [None]
  - HYPERTENSIVE EMERGENCY [None]
